FAERS Safety Report 18568275 (Version 1)
Quarter: 2020Q4

REPORT INFORMATION
  Report Type: Spontaneous
  Country: US (occurrence: US)
  Receive Date: 20201202
  Receipt Date: 20201202
  Transmission Date: 20210114
  Serious: No
  Sender: FDA-Public Use
  Company Number: US-SUN PHARMACEUTICAL INDUSTRIES LTD-2020R1-261319

PATIENT
  Age: 78 Year
  Sex: Female

DRUGS (1)
  1. CEQUA [Suspect]
     Active Substance: CYCLOSPORINE
     Indication: PRODUCT USED FOR UNKNOWN INDICATION
     Dosage: 1 GTT DROPS, BID
     Route: 047
     Dates: start: 20200902, end: 20200904

REACTIONS (2)
  - Ocular hyperaemia [Unknown]
  - Eye irritation [Unknown]

NARRATIVE: CASE EVENT DATE: 20200902
